FAERS Safety Report 22398692 (Version 2)
Quarter: 2023Q2

REPORT INFORMATION
  Report Type: Spontaneous
  Country: CN (occurrence: CN)
  Receive Date: 20230602
  Receipt Date: 20230608
  Transmission Date: 20230721
  Serious: Yes (Hospitalization, Other)
  Sender: FDA-Public Use
  Company Number: CN-ORGANON-O2305CHN002768

PATIENT
  Age: 80 Year
  Sex: Female
  Weight: 55 kg

DRUGS (4)
  1. EZETIMIBE [Suspect]
     Active Substance: EZETIMIBE
     Indication: Coronary artery disease
     Dosage: 10MG, QD
     Route: 048
     Dates: start: 20200418, end: 20230418
  2. ASPIRIN [Suspect]
     Active Substance: ASPIRIN
     Indication: Coronary artery disease
     Dosage: 100MG, QD (FORMULATION: ENTERIC-COATED TABLETS)
     Route: 048
     Dates: start: 20200418, end: 20230418
  3. ATORVASTATIN CALCIUM [Suspect]
     Active Substance: ATORVASTATIN CALCIUM
     Indication: Coronary artery disease
     Dosage: 20MG, QD
     Route: 048
     Dates: start: 20200418, end: 20230418
  4. PIPERAZINE BISFERULATE [Suspect]
     Active Substance: PIPERAZINE BISFERULATE
     Indication: Coronary artery disease
     Dosage: 100MG, QD
     Route: 048
     Dates: start: 20200418, end: 20230418

REACTIONS (3)
  - Upper gastrointestinal haemorrhage [Recovering/Resolving]
  - Chronic gastritis [Unknown]
  - Product use in unapproved indication [Unknown]

NARRATIVE: CASE EVENT DATE: 20200418
